FAERS Safety Report 25052642 (Version 3)
Quarter: 2025Q2

REPORT INFORMATION
  Report Type: Spontaneous
  Country: US (occurrence: US)
  Receive Date: 20250307
  Receipt Date: 20250429
  Transmission Date: 20250717
  Serious: No
  Sender: MYLAN
  Company Number: US-MYLANLABS-2025M1019462

PATIENT
  Age: 74 Year
  Sex: Male
  Weight: 79.38 kg

DRUGS (4)
  1. BREYNA [Suspect]
     Active Substance: BUDESONIDE\FORMOTEROL FUMARATE
     Indication: Asthma
     Dosage: 320/9 MICROGRAM, BID (2 PUFFS, TWICE A DAY)
  2. BREYNA [Suspect]
     Active Substance: BUDESONIDE\FORMOTEROL FUMARATE
     Dosage: 320/9 MICROGRAM, BID (2 PUFFS, TWICE A DAY)
     Route: 055
  3. BREYNA [Suspect]
     Active Substance: BUDESONIDE\FORMOTEROL FUMARATE
     Dosage: 320/9 MICROGRAM, BID (2 PUFFS, TWICE A DAY)
     Route: 055
  4. BREYNA [Suspect]
     Active Substance: BUDESONIDE\FORMOTEROL FUMARATE
     Dosage: 320/9 MICROGRAM, BID (2 PUFFS, TWICE A DAY)

REACTIONS (2)
  - Device delivery system issue [Unknown]
  - Product quality issue [Unknown]

NARRATIVE: CASE EVENT DATE: 20250305
